FAERS Safety Report 6422694-1 (Version None)
Quarter: 2009Q4

REPORT INFORMATION
  Report Type: 
  Country: None (occurrence: None)
  Receive Date: 20091102
  Receipt Date: 20091022
  Transmission Date: 20100525
  Serious: Yes (Hospitalization, Other)
  Sender: FDA-Public Use
  Company Number: FR-JNJFOC-20091007116

PATIENT
  Age: 33 Year
  Sex: Male

DRUGS (9)
  1. TAVANIC [Suspect]
     Route: 065
  2. TAVANIC [Suspect]
     Indication: SKIN ULCER
     Route: 065
  3. RIFADIN [Suspect]
     Indication: SKIN ULCER
     Route: 065
     Dates: start: 20090828, end: 20090910
  4. FUNGIZONE [Suspect]
     Indication: SKIN ULCER
     Route: 065
     Dates: start: 20090818, end: 20090910
  5. ARIXTRA [Suspect]
     Indication: DRUG USE FOR UNKNOWN INDICATION
     Route: 058
     Dates: start: 20090818, end: 20090911
  6. PIPERACILLINE PANPHARMA [Suspect]
     Indication: SKIN ULCER
     Route: 042
     Dates: start: 20090824, end: 20090908
  7. TAZOCILLINE [Suspect]
     Indication: SKIN ULCER
     Route: 042
     Dates: start: 20090818, end: 20090825
  8. VANCOMYCIN SANDOZ [Suspect]
     Indication: SKIN ULCER
     Route: 042
     Dates: start: 20090818, end: 20090825
  9. PERFALGAN [Suspect]
     Indication: DRUG USE FOR UNKNOWN INDICATION
     Route: 065
     Dates: start: 20090806, end: 20090909

REACTIONS (6)
  - CYTOLYTIC HEPATITIS [None]
  - DRUG RASH WITH EOSINOPHILIA AND SYSTEMIC SYMPTOMS [None]
  - EOSINOPHILIA [None]
  - INTERSTITIAL LUNG DISEASE [None]
  - PYREXIA [None]
  - RASH ERYTHEMATOUS [None]
